FAERS Safety Report 5828417-9 (Version None)
Quarter: 2008Q3

REPORT INFORMATION
  Report Type: 
  Country: None (occurrence: None)
  Receive Date: 20080729
  Receipt Date: 20080714
  Transmission Date: 20090109
  Serious: Yes (Hospitalization)
  Sender: FDA-Public Use
  Company Number: 2008S1012373

PATIENT
  Age: 73 Year
  Sex: Female

DRUGS (11)
  1. CETIRIZINE HCL [Suspect]
     Indication: DRUG USE FOR UNKNOWN INDICATION
     Dosage: 10 MG; DAILY; ORAL
     Route: 048
     Dates: end: 20080620
  2. CALCICHEW D3 (CON.) [Concomitant]
  3. CODEINE (CON.) [Concomitant]
  4. CYCLIZINE (CON.) [Concomitant]
  5. MAGNESIUM HYDROXIDE (CON.) [Concomitant]
  6. MOVICOL /01053601/ (CON.) [Concomitant]
  7. NICOTINE (CON.) [Concomitant]
  8. PARACETAMOL (CON.) [Concomitant]
  9. SENNA /00142201/ (CON.) [Concomitant]
  10. SIMVASTATIN (CON.) [Concomitant]
  11. TROSPIUM CHOLORIDE (CON.) [Concomitant]

REACTIONS (1)
  - PLATELET COUNT INCREASED [None]
